FAERS Safety Report 6214678-3 (Version None)
Quarter: 2009Q2

REPORT INFORMATION
  Report Type: 
  Country: None (occurrence: None)
  Receive Date: 20090604
  Receipt Date: 20090525
  Transmission Date: 20091009
  Serious: Yes (Hospitalization)
  Sender: FDA-Public Use
  Company Number: FR-PFIZER INC-2009204262

PATIENT
  Age: 40 Year

DRUGS (2)
  1. CHAMPIX [Suspect]
     Indication: SMOKING CESSATION THERAPY
     Dosage: 1 MG, 2X/DAY
     Route: 048
     Dates: start: 20080517, end: 20080729
  2. CHAMPIX [Suspect]
     Dosage: 1 MG, 1X/DAY
     Dates: start: 20080729, end: 20080803

REACTIONS (2)
  - CONFUSIONAL STATE [None]
  - SUICIDE ATTEMPT [None]
